FAERS Safety Report 13329638 (Version 4)
Quarter: 2019Q3

REPORT INFORMATION
  Report Type: Report from Study
  Country: IL (occurrence: IL)
  Receive Date: 20170313
  Receipt Date: 20190822
  Transmission Date: 20191004
  Serious: Yes (Other)
  Sender: FDA-Public Use
  Company Number: IL-TEVA-742039ACC

PATIENT
  Age: 39 Year
  Sex: Female

DRUGS (6)
  1. VITAMIN D [Concomitant]
     Active Substance: VITAMIN D NOS
  2. ELTROXIN [Concomitant]
     Active Substance: LEVOTHYROXINE
  3. OPTALGIN [Concomitant]
     Active Substance: METAMIZOLE
  4. VITAMIN B12 [Concomitant]
     Active Substance: CYANOCOBALAMIN
  5. LORIVAN [Concomitant]
     Dates: start: 2013
  6. COPAXONE [Suspect]
     Active Substance: GLATIRAMER ACETATE
     Indication: RELAPSING-REMITTING MULTIPLE SCLEROSIS
     Dates: start: 20170214, end: 2017

REACTIONS (3)
  - Maternal exposure during pregnancy [Unknown]
  - Foetal hypokinesia [Unknown]
  - Normal newborn [Unknown]

NARRATIVE: CASE EVENT DATE: 2017
